FAERS Safety Report 17667042 (Version 1)
Quarter: 2020Q2

REPORT INFORMATION
  Report Type: Spontaneous
  Country: US (occurrence: US)
  Receive Date: 20200414
  Receipt Date: 20200414
  Transmission Date: 20200713
  Serious: Yes (Other)
  Sender: FDA-Public Use
  Company Number: US-ASTELLAS-2019US038768

PATIENT
  Sex: Male

DRUGS (3)
  1. IBRUTINIB [Suspect]
     Active Substance: IBRUTINIB
     Indication: CHRONIC GRAFT VERSUS HOST DISEASE
     Dosage: 420 MG, ONCE DAILY (420 MG,1 IN 1 D)
     Route: 048
     Dates: start: 20190708
  2. TACROLIMUS. [Suspect]
     Active Substance: TACROLIMUS
     Indication: PRODUCT USED FOR UNKNOWN INDICATION
     Dosage: UNK UNK, UNKNOWN FREQ.
     Route: 065
  3. IBRUTINIB [Suspect]
     Active Substance: IBRUTINIB
     Dosage: 420 MG, ONCE DAILY (420 MG,1 IN 1 D)
     Route: 048
     Dates: start: 20190709

REACTIONS (7)
  - Platelet count decreased [Not Recovered/Not Resolved]
  - Muscle spasms [Unknown]
  - Oropharyngeal discomfort [Recovering/Resolving]
  - Eye disorder [Recovering/Resolving]
  - Contusion [Unknown]
  - Product dose omission [Unknown]
  - Eye irritation [Unknown]
